FAERS Safety Report 7242261-X (Version None)
Quarter: 2011Q1

REPORT INFORMATION
  Report Type: 
  Country: None (occurrence: None)
  Receive Date: 20110125
  Receipt Date: 20110121
  Transmission Date: 20110831
  Serious: Yes (Other)
  Sender: FDA-Public Use
  Company Number: US-ASTRAZENECA-2007UW10932

PATIENT
  Age: 14109 Day
  Sex: Female
  Weight: 121.3 kg

DRUGS (26)
  1. SEROQUEL [Suspect]
     Indication: DEPRESSION
     Dosage: 15-100 MG
     Route: 048
     Dates: start: 20011120, end: 20070809
  2. LEXAPRO [Concomitant]
     Dates: start: 20091006
  3. GABITRIL [Concomitant]
     Dates: start: 20040101
  4. SEROQUEL [Suspect]
     Indication: ANXIETY
     Dosage: 15-100 MG
     Route: 048
     Dates: start: 20011120, end: 20070809
  5. SEROQUEL [Suspect]
     Route: 048
     Dates: start: 20040112, end: 20061025
  6. RISPERDAL [Concomitant]
     Indication: DEPRESSION
     Dosage: 0.25 MG BID TO 1 MG BID
     Route: 048
     Dates: start: 20020808, end: 20070630
  7. PROZAC [Concomitant]
     Dosage: TWO 20 MG TABLETS DAILY
  8. ATIVAN [Concomitant]
     Indication: ANXIETY
     Dosage: 0.5-1.0 MG
     Route: 048
     Dates: start: 20011120
  9. TRAZODONE HCL [Concomitant]
     Indication: INSOMNIA
     Dosage: 50-200 MG
     Route: 048
     Dates: start: 20011120, end: 20070809
  10. VISTARIL [Concomitant]
     Indication: AGITATION
     Dosage: 25-150 MG
     Route: 048
     Dates: start: 20040106
  11. CRESTOR [Concomitant]
     Dates: start: 20091006
  12. SEROQUEL [Suspect]
     Route: 048
     Dates: start: 20040112, end: 20061025
  13. SEROQUEL [Suspect]
     Route: 048
     Dates: start: 20040112, end: 20061025
  14. ATIVAN [Concomitant]
     Indication: AGITATION
     Dosage: 0.5-1.0 MG
     Route: 048
     Dates: start: 20011120
  15. ATIVAN [Concomitant]
  16. HALDOL [Concomitant]
     Indication: AGITATION
     Route: 048
     Dates: start: 20011120
  17. KLONOPIN [Concomitant]
     Dates: start: 20090122
  18. ULTRAM [Concomitant]
     Dates: start: 20091006
  19. ATIVAN [Concomitant]
  20. CYMBALTA [Concomitant]
     Dosage: TWO 60 MG TABLETS PER DAY
     Dates: start: 20080514
  21. SEROQUEL [Suspect]
     Indication: PSYCHOTIC DISORDER
     Dosage: 15-100 MG
     Route: 048
     Dates: start: 20011120, end: 20070809
  22. TRAZODONE HCL [Concomitant]
     Dosage: TWO 50 MG TABLETS PER DAY
     Dates: start: 20070101
  23. SERZONE [Concomitant]
     Route: 048
     Dates: start: 20000425
  24. SEROQUEL [Suspect]
     Route: 048
     Dates: start: 20040112, end: 20061025
  25. LEXAPRO [Concomitant]
     Dates: start: 20010101
  26. SEROQUEL [Suspect]
     Indication: SLEEP DISORDER
     Dosage: 15-100 MG
     Route: 048
     Dates: start: 20011120, end: 20070809

REACTIONS (6)
  - TYPE 2 DIABETES MELLITUS [None]
  - NEUROPATHY PERIPHERAL [None]
  - DIABETES MELLITUS [None]
  - WEIGHT INCREASED [None]
  - SPINAL DISORDER [None]
  - INTERVERTEBRAL DISC PROTRUSION [None]
